FAERS Safety Report 10051589 (Version 2)
Quarter: 2014Q2

REPORT INFORMATION
  Report Type: Spontaneous
  Country: LY (occurrence: LY)
  Receive Date: 20140401
  Receipt Date: 20140516
  Transmission Date: 20141212
  Serious: Yes (Death)
  Sender: FDA-Public Use
  Company Number: LY-ABBVIE-14P-097-1219573-00

PATIENT
  Age: 0 Day
  Sex: Male
  Weight: .87 kg

DRUGS (4)
  1. SURVANTA [Suspect]
     Indication: NEONATAL RESPIRATORY DISTRESS SYNDROME
     Dosage: ADMINISTRATION OF SURVANTA VIA ETT
     Dates: start: 20140325, end: 20140326
  2. AMPICILINA [Concomitant]
     Indication: NEONATAL RESPIRATORY DISTRESS SYNDROME
     Route: 042
     Dates: start: 20140325
  3. GENTAMYCIN [Concomitant]
     Indication: NEONATAL RESPIRATORY DISTRESS SYNDROME
     Route: 042
     Dates: start: 20140325
  4. AMINOPHYLIN [Concomitant]
     Indication: NEONATAL RESPIRATORY DISTRESS SYNDROME
     Route: 042
     Dates: start: 20140325

REACTIONS (1)
  - Pulmonary haemorrhage [Fatal]
